FAERS Safety Report 8437122-4 (Version None)
Quarter: 2012Q2

REPORT INFORMATION
  Report Type: 
  Country: None (occurrence: None)
  Receive Date: 20120614
  Receipt Date: 20120402
  Transmission Date: 20120825
  Serious: No
  Sender: FDA-Public Use
  Company Number: US-AMGEN-USASP2012020746

PATIENT
  Age: 62 Year
  Sex: Female
  Weight: 32.2 kg

DRUGS (6)
  1. PROLIA [Suspect]
     Indication: OSTEOPOROSIS
     Dosage: 60 MG, Q6MO
     Dates: start: 20111017
  2. CALCIUM [Concomitant]
     Dosage: UNK
  3. VITAMIN D [Concomitant]
     Dosage: UNK
  4. BIOTIN [Concomitant]
     Dosage: UNK
  5. MULTI-VITAMIN [Concomitant]
     Dosage: UNK
  6. MAGNESIUM [Concomitant]
     Dosage: UNK

REACTIONS (5)
  - DRY SKIN [None]
  - PRURITUS [None]
  - RASH MACULAR [None]
  - ERYTHEMA [None]
  - RASH [None]
